FAERS Safety Report 8267230-2 (Version None)
Quarter: 2012Q2

REPORT INFORMATION
  Report Type: 
  Country: None (occurrence: None)
  Receive Date: 20120404
  Receipt Date: 20120321
  Transmission Date: 20120825
  Serious: Yes (Congenital Anomaly, Other)
  Sender: FDA-Public Use
  Company Number: JP-008093

PATIENT
  Sex: Female

DRUGS (2)
  1. MENOTROPINS [Suspect]
     Indication: OVULATION DISORDER
  2. CHORIONIC GONADOTROPIN [Suspect]
     Indication: OVULATION DISORDER

REACTIONS (7)
  - PRADER-WILLI SYNDROME [None]
  - HYPOTONIA NEONATAL [None]
  - MATERNAL DRUGS AFFECTING FOETUS [None]
  - NEONATAL RESPIRATORY ARREST [None]
  - CAESAREAN SECTION [None]
  - FEEDING DISORDER NEONATAL [None]
  - PREMATURE BABY [None]
